FAERS Safety Report 5729346-1 (Version None)
Quarter: 2008Q2

REPORT INFORMATION
  Report Type: 
  Country: None (occurrence: None)
  Receive Date: 20080501
  Receipt Date: 20080424
  Transmission Date: 20081010
  Serious: Yes (Hospitalization)
  Sender: FDA-Public Use
  Company Number: 2008SP007780

PATIENT
  Age: 58 Year
  Sex: Male
  Weight: 81.6475 kg

DRUGS (2)
  1. PEG-INTRON [Suspect]
     Indication: HEPATITIS C
     Dates: start: 20080209, end: 20080322
  2. RIBAVIRIN [Suspect]
     Indication: HEPATITIS C
     Dosage: PO
     Route: 048
     Dates: start: 20080209, end: 20080322

REACTIONS (11)
  - ANAEMIA [None]
  - ANOREXIA [None]
  - ASTHENIA [None]
  - BLOOD PRESSURE INCREASED [None]
  - COLLAPSE OF LUNG [None]
  - DEHYDRATION [None]
  - DIARRHOEA [None]
  - DYSPNOEA [None]
  - PNEUMONIA [None]
  - PULMONARY MASS [None]
  - WEIGHT DECREASED [None]
